FAERS Safety Report 5124696-4 (Version None)
Quarter: 2006Q4

REPORT INFORMATION
  Report Type: 
  Country: None (occurrence: None)
  Receive Date: 20061006
  Receipt Date: 20061006
  Transmission Date: 20070319
  Serious: No
  Sender: FDA-Public Use
  Company Number: None

PATIENT
  Sex: Female
  Weight: 90.7194 kg

DRUGS (1)
  1. LIPITOR [Suspect]
     Indication: BLOOD CHOLESTEROL INCREASED
     Dosage: DAILY PO
     Route: 048
     Dates: start: 20051103, end: 20060130

REACTIONS (6)
  - ABDOMINAL PAIN [None]
  - AMNESIA [None]
  - COLITIS [None]
  - CONDITION AGGRAVATED [None]
  - MUSCLE ATROPHY [None]
  - MUSCLE SPASMS [None]
